FAERS Safety Report 20319366 (Version 1)
Quarter: 2022Q1

REPORT INFORMATION
  Report Type: Spontaneous
  Country: BR (occurrence: BR)
  Receive Date: 20220110
  Receipt Date: 20220110
  Transmission Date: 20220424
  Serious: Yes (Other)
  Sender: FDA-Public Use
  Company Number: BR-SA-2022SA005819

PATIENT
  Sex: Female
  Weight: 84 kg

DRUGS (2)
  1. CLOBAZAM [Suspect]
     Active Substance: CLOBAZAM
     Indication: Anxiety
     Dosage: UNK, Q12H
     Route: 048
     Dates: start: 2009
  2. SULPIRIDE [Concomitant]
     Active Substance: SULPIRIDE
     Indication: Anxiety
     Dosage: UNK, QD
     Route: 048

REACTIONS (3)
  - Drug dependence [Unknown]
  - Mood altered [Unknown]
  - Delusional perception [Unknown]
